FAERS Safety Report 7478339-5 (Version None)
Quarter: 2011Q2

REPORT INFORMATION
  Report Type: 
  Country: None (occurrence: None)
  Receive Date: 20110513
  Receipt Date: 20110512
  Transmission Date: 20111010
  Serious: Yes (Hospitalization)
  Sender: FDA-Public Use
  Company Number: IT-SANOFI-AVENTIS-2011SA027504

PATIENT
  Age: 77 Year
  Sex: Female

DRUGS (9)
  1. ACTONEL [Concomitant]
     Route: 065
  2. ARAVA [Suspect]
     Indication: RHEUMATOID ARTHRITIS
     Route: 048
     Dates: start: 20110312, end: 20110428
  3. FOLINA [Concomitant]
     Route: 048
  4. PREDNISONE [Concomitant]
     Route: 048
  5. PREDNISONE [Concomitant]
     Route: 048
  6. COLECALCIFEROL [Concomitant]
     Route: 065
  7. METHOTREXATE [Suspect]
     Indication: RHEUMATOID ARTHRITIS
     Route: 048
     Dates: start: 20110312, end: 20110428
  8. METHOTREXATE [Suspect]
     Route: 030
     Dates: start: 20110312, end: 20110428
  9. OXYCODONE HCL AND ACETAMINOPHEN [Concomitant]
     Route: 065

REACTIONS (2)
  - ANAEMIA [None]
  - HYPOGAMMAGLOBULINAEMIA [None]
